FAERS Safety Report 17367339 (Version 1)
Quarter: 2020Q1

REPORT INFORMATION
  Report Type: Report from Study
  Country: US (occurrence: US)
  Receive Date: 20200204
  Receipt Date: 20200204
  Transmission Date: 20200409
  Serious: Yes (Death)
  Sender: FDA-Public Use
  Company Number: US-ASTRAZENECA-2020SE16910

PATIENT
  Sex: Female

DRUGS (14)
  1. KEYTRUDA [Concomitant]
     Active Substance: PEMBROLIZUMAB
  2. NOVOLOG [Concomitant]
     Active Substance: INSULIN ASPART
  3. COENZYME Q-10 [Concomitant]
  4. PROBIOTIC [Concomitant]
     Active Substance: PROBIOTICS NOS
  5. BRILINTA [Concomitant]
     Active Substance: TICAGRELOR
  6. KEFLEX [Concomitant]
     Active Substance: CEPHALEXIN
  7. POTASSIUM CHLORIDE. [Concomitant]
     Active Substance: POTASSIUM CHLORIDE
  8. MAGNESIUM [Concomitant]
     Active Substance: MAGNESIUM
  9. LASIX [Concomitant]
     Active Substance: FUROSEMIDE
  10. ASPIRIN. [Concomitant]
     Active Substance: ASPIRIN
  11. LOSARTAN POTASSIUM. [Concomitant]
     Active Substance: LOSARTAN POTASSIUM
  12. LYNPARZA [Suspect]
     Active Substance: OLAPARIB
     Indication: OVARIAN CANCER
     Route: 048
     Dates: start: 20190530
  13. TOPROL XL [Concomitant]
     Active Substance: METOPROLOL SUCCINATE
  14. AGED GARLIC [Concomitant]

REACTIONS (1)
  - Death [Fatal]
